FAERS Safety Report 7450919-2 (Version None)
Quarter: 2011Q2

REPORT INFORMATION
  Report Type: 
  Country: None (occurrence: None)
  Receive Date: 20110502
  Receipt Date: 20110426
  Transmission Date: 20111010
  Serious: No
  Sender: FDA-Public Use
  Company Number: US-PFIZER INC-2011090140

PATIENT
  Sex: Female
  Weight: 69.4 kg

DRUGS (4)
  1. PREMPRO [Suspect]
     Indication: NIGHT SWEATS
  2. PREMPRO [Suspect]
     Indication: VULVOVAGINAL DRYNESS
     Dosage: UNK, DAILY
     Route: 048
     Dates: start: 20030101
  3. PREMPRO [Suspect]
     Indication: HOT FLUSH
  4. GABAPENTIN [Concomitant]
     Indication: NEUROPATHY PERIPHERAL
     Dosage: UNK

REACTIONS (1)
  - DRUG INEFFECTIVE [None]
